FAERS Safety Report 6767775-8 (Version None)
Quarter: 2010Q2

REPORT INFORMATION
  Report Type: 
  Country: None (occurrence: None)
  Receive Date: 20100614
  Receipt Date: 20100603
  Transmission Date: 20101027
  Serious: Yes (Disabling)
  Sender: FDA-Public Use
  Company Number: GB-ROCHE-704315

PATIENT
  Sex: Female
  Weight: 63.3 kg

DRUGS (2)
  1. BEVACIZUMAB [Suspect]
     Indication: COLON CANCER
     Dosage: FORM: INFUSION, DATE MOST RECENT DOSE GIVEN: 29 DECEMBER 2009, CURRENT CYCLE NUMBER: 15
     Route: 042
     Dates: start: 20090303
  2. CAPECITABINE [Suspect]
     Indication: COLON CANCER
     Dosage: DATE MOST RECENT DOSE GIVEN: 28 JULY 2009, CURRENT CYCCLE NUMBER: COMPLETED, % DOSE REDUCTION: 10
     Route: 048
     Dates: start: 20090303, end: 20090728

REACTIONS (1)
  - BALANCE DISORDER [None]
